FAERS Safety Report 6150025-3 (Version None)
Quarter: 2009Q2

REPORT INFORMATION
  Report Type: 
  Country: None (occurrence: None)
  Receive Date: 20090409
  Receipt Date: 20090330
  Transmission Date: 20091009
  Serious: Yes (Death)
  Sender: FDA-Public Use
  Company Number: B0569005A

PATIENT
  Sex: Female

DRUGS (2)
  1. LAMOTRIGINE [Suspect]
     Indication: CONVULSION
     Route: 065
  2. EPILIM [Concomitant]
     Indication: CONVULSION
     Route: 065

REACTIONS (4)
  - MOUTH ULCERATION [None]
  - ORAL CANDIDIASIS [None]
  - PNEUMONIA [None]
  - STEVENS-JOHNSON SYNDROME [None]
